APPROVED DRUG PRODUCT: K-TAB
Active Ingredient: POTASSIUM CHLORIDE
Strength: 10MEQ **Federal Register determination that product was not discontinued or withdrawn for safety or effectiveness reasons**
Dosage Form/Route: TABLET, EXTENDED RELEASE;ORAL
Application: N018279 | Product #001
Applicant: ABBVIE INC
Approved: Approved Prior to Jan 1, 1982 | RLD: Yes | RS: No | Type: DISCN